FAERS Safety Report 17886797 (Version 1)
Quarter: 2020Q2

REPORT INFORMATION
  Report Type: Spontaneous
  Country: US (occurrence: US)
  Receive Date: 20200611
  Receipt Date: 20200611
  Transmission Date: 20200714
  Serious: No
  Sender: FDA-Public Use
  Company Number: US-ASCENT PHARMACEUTICALS, INC.-2085691

PATIENT
  Age: 60 Year
  Sex: Male
  Weight: 96.36 kg

DRUGS (5)
  1. ZINC. [Concomitant]
     Active Substance: ZINC
     Route: 065
  2. COMPOUNDED TESTOSTERONE CREAM [Concomitant]
     Active Substance: TESTOSTERONE
     Route: 065
  3. VITAMIN C [Concomitant]
     Active Substance: ASCORBIC ACID
     Route: 065
  4. OMEGA-3-ACID ETHYL ESTERS. [Suspect]
     Active Substance: OMEGA-3-ACID ETHYL ESTERS
     Indication: LIPIDS INCREASED
     Route: 048
     Dates: start: 20200226, end: 20200408
  5. OLMESARTAN MEDOXOMIL. [Concomitant]
     Active Substance: OLMESARTAN MEDOXOMIL
     Route: 065

REACTIONS (3)
  - Diarrhoea [Recovered/Resolved]
  - Product quality issue [Recovered/Resolved]
  - Flatulence [Recovered/Resolved]

NARRATIVE: CASE EVENT DATE: 20200303
